FAERS Safety Report 13522716 (Version 2)
Quarter: 2017Q2

REPORT INFORMATION
  Report Type: Spontaneous
  Country: GB (occurrence: GB)
  Receive Date: 20170508
  Receipt Date: 20170512
  Transmission Date: 20170830
  Serious: Yes (Hospitalization)
  Sender: FDA-Public Use
  Company Number: GB-BIOMARINAP-GB-2017-113895

PATIENT
  Age: 26 Year
  Sex: Female

DRUGS (1)
  1. ALDURAZYME [Suspect]
     Active Substance: LARONIDASE
     Indication: PRODUCT USED FOR UNKNOWN INDICATION
     Dosage: 6000 IU, QW
     Route: 042

REACTIONS (6)
  - Migraine [Recovered/Resolved]
  - Vision blurred [Recovering/Resolving]
  - Nausea [Unknown]
  - Paraesthesia [Recovered/Resolved]
  - Vertigo [Unknown]
  - Body temperature increased [Unknown]

NARRATIVE: CASE EVENT DATE: 20170426
